FAERS Safety Report 24111271 (Version 1)
Quarter: 2024Q3

REPORT INFORMATION
  Report Type: Spontaneous
  Country: RO (occurrence: RO)
  Receive Date: 20240718
  Receipt Date: 20240718
  Transmission Date: 20241017
  Serious: Yes (Hospitalization, Other)
  Sender: BRISTOL MYERS SQUIBB
  Company Number: RO-BRISTOL-MYERS SQUIBB COMPANY-2024-109162

PATIENT
  Age: 64 Year
  Sex: Female

DRUGS (3)
  1. NIVOLUMAB [Suspect]
     Active Substance: NIVOLUMAB
     Indication: Clear cell renal cell carcinoma
     Dates: start: 202301
  2. NIVOLUMAB [Suspect]
     Active Substance: NIVOLUMAB
  3. IPILIMUMAB [Suspect]
     Active Substance: IPILIMUMAB
     Indication: Clear cell renal cell carcinoma
     Dates: start: 202301

REACTIONS (12)
  - Blood creatinine increased [Unknown]
  - Pneumonitis [Recovering/Resolving]
  - Amylase increased [Unknown]
  - Lipase increased [Unknown]
  - Dyslipidaemia [Recovering/Resolving]
  - Blood thyroid stimulating hormone increased [Unknown]
  - Cyclic vomiting syndrome [Unknown]
  - General physical health deterioration [Recovering/Resolving]
  - Dysphonia [Recovering/Resolving]
  - Asthenia [Recovering/Resolving]
  - Productive cough [Recovering/Resolving]
  - Dyspnoea exertional [Recovering/Resolving]

NARRATIVE: CASE EVENT DATE: 20230501
